FAERS Safety Report 5136913-5 (Version None)
Quarter: 2006Q4

REPORT INFORMATION
  Report Type: 
  Country: None (occurrence: None)
  Receive Date: 20061023
  Receipt Date: 20061011
  Transmission Date: 20070319
  Serious: Yes (Other)
  Sender: FDA-Public Use
  Company Number: 2006115474

PATIENT
  Age: 48 Year
  Sex: Female
  Weight: 83 kg

DRUGS (4)
  1. LIPITOR [Suspect]
     Indication: ANGINA PECTORIS
     Dosage: 80 MG (80 MG, 1 IN 1 D), ORAL
     Route: 048
     Dates: start: 20060708, end: 20060914
  2. ASPIRIN [Concomitant]
  3. LEVOTHYROXINE SODIUM [Concomitant]
  4. ACETAMINOPHEN [Concomitant]

REACTIONS (13)
  - ASPARTATE AMINOTRANSFERASE INCREASED [None]
  - BLOOD ALBUMIN INCREASED [None]
  - BODY TEMPERATURE INCREASED [None]
  - CHILLS [None]
  - DIZZINESS [None]
  - DYSURIA [None]
  - FEELING ABNORMAL [None]
  - FEELING COLD [None]
  - GLOBULINS INCREASED [None]
  - MALAISE [None]
  - NASOPHARYNGITIS [None]
  - PROTEIN TOTAL INCREASED [None]
  - URINARY TRACT INFECTION [None]
